FAERS Safety Report 9293864 (Version 1)
Quarter: 2013Q1

REPORT INFORMATION
  Report Type: Spontaneous
  Country: US (occurrence: None)
  Receive Date: 20121217
  Receipt Date: 20121217
  Transmission Date: 20140127
  Serious: Yes (Other)
  Sender: FDA-Public Use
  Company Number: 068410

PATIENT
  Sex: 0

DRUGS (1)
  1. ROTIGOTINE [Suspect]
     Dosage: (TO NOT CONTINUING)

REACTIONS (1)
  - Abdominal discomfort [None]
